FAERS Safety Report 7036069-8 (Version None)
Quarter: 2010Q4

REPORT INFORMATION
  Report Type: 
  Country: None (occurrence: None)
  Receive Date: 20101008
  Receipt Date: 20101004
  Transmission Date: 20110411
  Serious: Yes (Life-Threatening, Other)
  Sender: FDA-Public Use
  Company Number: PHHY2010US66078

PATIENT
  Sex: Male

DRUGS (1)
  1. TASIGNA [Suspect]
     Indication: CHRONIC MYELOID LEUKAEMIA
     Dosage: 200 MG 2, OD
     Route: 048

REACTIONS (4)
  - CHRONIC MYELOID LEUKAEMIA [None]
  - MALAISE [None]
  - TERMINAL STATE [None]
  - WHITE BLOOD CELL COUNT INCREASED [None]
